FAERS Safety Report 13270602 (Version 1)
Quarter: 2017Q1

REPORT INFORMATION
  Report Type: Not Available
  Country: US (occurrence: US)
  Receive Date: 20170224
  Receipt Date: 20170224
  Transmission Date: 20170428
  Serious: Yes (Other)
  Sender: FDA-Public Use
  Company Number: US-ANIPHARMA-2017-US-001963

PATIENT
  Sex: Female

DRUGS (1)
  1. LITHOBID [Suspect]
     Active Substance: LITHIUM CARBONATE
     Dosage: 1 TABLET ONCE
     Route: 048
     Dates: start: 20160818

REACTIONS (5)
  - Chest pain [Unknown]
  - Balance disorder [Unknown]
  - Cognitive disorder [Unknown]
  - Cardiac disorder [Unknown]
  - Ischaemic limb pain [Unknown]

NARRATIVE: CASE EVENT DATE: 201608
